FAERS Safety Report 19357214 (Version 1)
Quarter: 2021Q2

REPORT INFORMATION
  Report Type: Spontaneous
  Country: US (occurrence: US)
  Receive Date: 20210602
  Receipt Date: 20210602
  Transmission Date: 20210717
  Serious: Yes (Disabling)
  Sender: FDA-Public Use
  Company Number: None

PATIENT
  Age: 56 Year
  Sex: Female
  Weight: 72 kg

DRUGS (20)
  1. GABAPENTIN. [Concomitant]
     Active Substance: GABAPENTIN
  2. SALINE NEBS [Concomitant]
  3. MULTIVITAMIN [Concomitant]
     Active Substance: VITAMINS
  4. LISINOPRIL. [Concomitant]
     Active Substance: LISINOPRIL
  5. ZOFRAN (PRN) [Concomitant]
  6. PLAQUENIL [Concomitant]
     Active Substance: HYDROXYCHLOROQUINE SULFATE
  7. PREMARIN [Concomitant]
     Active Substance: ESTROGENS, CONJUGATED
  8. SINGULAIR [Concomitant]
     Active Substance: MONTELUKAST SODIUM
  9. AMLODIPINE [Concomitant]
     Active Substance: AMLODIPINE BESYLATE
  10. KETOROLAC INJ [Concomitant]
  11. OMEPRAZOLE. [Concomitant]
     Active Substance: OMEPRAZOLE
  12. ZOLPIDEM [Concomitant]
     Active Substance: ZOLPIDEM TARTRATE
  13. PHENERGAN (PRN) [Concomitant]
  14. ADVAIR HFA [Concomitant]
     Active Substance: FLUTICASONE PROPIONATE\SALMETEROL XINAFOATE
  15. CRESTOR [Concomitant]
     Active Substance: ROSUVASTATIN CALCIUM
  16. THE VEST [Concomitant]
  17. AIMOVIG [Suspect]
     Active Substance: ERENUMAB-AOOE
     Indication: MIGRAINE
     Dosage: ?          QUANTITY:1 INJECTION(S);OTHER FREQUENCY:MONTHLY;OTHER ROUTE:SUBCUTANEOUS?
     Dates: start: 20210310, end: 20210310
  18. LIDEX [Concomitant]
     Active Substance: FLUOCINONIDE
  19. TURMERIC [Concomitant]
     Active Substance: HERBALS\TURMERIC
  20. NURTEC ODT [Concomitant]
     Active Substance: RIMEGEPANT SULFATE

REACTIONS (7)
  - Injection site urticaria [None]
  - Arthralgia [None]
  - Oedema peripheral [None]
  - Contusion [None]
  - Hypokinesia [None]
  - Hypertension [None]
  - Joint swelling [None]

NARRATIVE: CASE EVENT DATE: 20210311
